FAERS Safety Report 16025446 (Version 5)
Quarter: 2019Q2

REPORT INFORMATION
  Report Type: Spontaneous
  Country: GB (occurrence: GB)
  Receive Date: 20190301
  Receipt Date: 20190405
  Transmission Date: 20190711
  Serious: Yes (Other)
  Sender: FDA-Public Use
  Company Number: GB-ASCEND THERAPEUTICS-2063425

PATIENT
  Age: 47 Year
  Sex: Female

DRUGS (5)
  1. ESTROGEL [Suspect]
     Active Substance: ESTRADIOL
     Indication: HORMONE REPLACEMENT THERAPY
  2. OESTROGEL (ESTRADIOL) [Suspect]
     Active Substance: ESTRADIOL
  3. OESTROGEL (ESTRADIOL) [Suspect]
     Active Substance: ESTRADIOL
  4. UTROGESTAN [Suspect]
     Active Substance: PROGESTERONE
  5. PROGESTERONE. [Concomitant]
     Active Substance: PROGESTERONE

REACTIONS (5)
  - Viral labyrinthitis [Unknown]
  - Headache [Unknown]
  - Asthenia [Unknown]
  - Therapeutic response decreased [Unknown]
  - Vertigo [Unknown]
